FAERS Safety Report 16229511 (Version 1)
Quarter: 2019Q2

REPORT INFORMATION
  Report Type: Spontaneous
  Country: GB (occurrence: GB)
  Receive Date: 20190423
  Receipt Date: 20190423
  Transmission Date: 20190711
  Serious: Yes (Hospitalization, Other)
  Sender: FDA-Public Use
  Company Number: PHHY2019GB087284

PATIENT
  Age: 63 Year
  Sex: Female

DRUGS (18)
  1. RIVAROXABAN [Concomitant]
     Active Substance: RIVAROXABAN
     Dosage: 1 OT, QD
     Route: 048
     Dates: start: 20151104
  2. FLUCLOXACILLIN [Concomitant]
     Active Substance: FLUCLOXACILLIN
     Indication: CELLULITIS
     Dosage: UNK
     Route: 048
  3. RIVAROXABAN [Concomitant]
     Active Substance: RIVAROXABAN
     Indication: PYREXIA
     Dosage: 30 MG, QD
     Route: 048
     Dates: start: 20151014, end: 20151103
  4. AMOXYCILLIN [Concomitant]
     Active Substance: AMOXICILLIN
     Indication: CELLULITIS
     Dosage: UNK
     Route: 048
  5. DALTEPARIN [Concomitant]
     Active Substance: DALTEPARIN
     Indication: PRODUCT USED FOR UNKNOWN INDICATION
     Dosage: UNK
     Route: 058
  6. DOCETAXEL. [Suspect]
     Active Substance: DOCETAXEL
     Indication: BREAST CANCER METASTATIC
     Dosage: 130 MG, QD
     Route: 042
     Dates: start: 20150522, end: 20150522
  7. PERTUZUMAB. [Suspect]
     Active Substance: PERTUZUMAB
     Dosage: 420 MG, Q3W
     Route: 042
     Dates: start: 20150622
  8. CALOGEN EXTRA [Concomitant]
     Indication: PRODUCT USED FOR UNKNOWN INDICATION
     Dosage: UNK
     Route: 048
  9. DOCETAXEL. [Suspect]
     Active Substance: DOCETAXEL
     Dosage: 80 MG, QD
     Route: 042
     Dates: start: 20150622, end: 20150622
  10. DOCETAXEL. [Suspect]
     Active Substance: DOCETAXEL
     Dosage: 90 MG, Q3W
     Route: 042
     Dates: start: 20150714, end: 20150915
  11. PERTUZUMAB. [Suspect]
     Active Substance: PERTUZUMAB
     Indication: BREAST CANCER METASTATIC
     Dosage: 840 MG, QD
     Route: 042
     Dates: start: 20150520, end: 20150520
  12. TRASTUZUMAB. [Suspect]
     Active Substance: TRASTUZUMAB
     Dosage: 399 MG, Q3W
     Route: 042
     Dates: start: 20150622
  13. TAZOCIN [Concomitant]
     Active Substance: PIPERACILLIN SODIUM\TAZOBACTAM SODIUM
     Indication: PYREXIA
     Dosage: 13.5 MG, QD
     Route: 042
     Dates: start: 20151005, end: 20151012
  14. TRASTUZUMAB. [Suspect]
     Active Substance: TRASTUZUMAB
     Indication: BREAST CANCER METASTATIC
     Dosage: 525 MG, QD
     Route: 042
     Dates: start: 20150521
  15. STREPTOKINASE [Concomitant]
     Active Substance: STREPTOKINASE
     Indication: PRODUCT USED FOR UNKNOWN INDICATION
     Dosage: 250000 OT, UNK
     Route: 042
  16. PERTUZUMAB. [Suspect]
     Active Substance: PERTUZUMAB
     Dosage: 420 MG, Q3W
     Route: 042
     Dates: start: 20151119
  17. TRASTUZUMAB. [Suspect]
     Active Substance: TRASTUZUMAB
     Dosage: 399 MG, Q3W
     Route: 042
     Dates: start: 20151119
  18. FLUCONAZOLE. [Concomitant]
     Active Substance: FLUCONAZOLE
     Indication: PRODUCT USED FOR UNKNOWN INDICATION
     Dosage: UNK
     Route: 048

REACTIONS (10)
  - Decreased appetite [Recovered/Resolved]
  - Pulmonary embolism [Recovered/Resolved]
  - Catheter site erythema [Recovered/Resolved]
  - Sepsis [Recovered/Resolved]
  - Productive cough [Not Recovered/Not Resolved]
  - Lower respiratory tract infection [Recovered/Resolved]
  - Device related infection [Recovered/Resolved]
  - Nausea [Recovered/Resolved]
  - Cellulitis [Recovered/Resolved]
  - Catheter site hypersensitivity [Recovered/Resolved]

NARRATIVE: CASE EVENT DATE: 201509
